FAERS Safety Report 6688056-7 (Version None)
Quarter: 2010Q2

REPORT INFORMATION
  Report Type: 
  Country: None (occurrence: None)
  Receive Date: 20100420
  Receipt Date: 20100413
  Transmission Date: 20101027
  Serious: Yes (Death, Hospitalization)
  Sender: FDA-Public Use
  Company Number: PHHY2010US23517

PATIENT
  Sex: Male

DRUGS (4)
  1. EXJADE [Suspect]
     Indication: THALASSAEMIA
     Dosage: 750 MG, QD
     Route: 048
  2. EXJADE [Suspect]
     Indication: IRON OVERLOAD
  3. DOPAMINE HCL [Concomitant]
  4. DESFERAL [Concomitant]
     Route: 042

REACTIONS (4)
  - CARDIAC FAILURE [None]
  - PYREXIA [None]
  - SHOCK [None]
  - TREATMENT NONCOMPLIANCE [None]
